FAERS Safety Report 5394015-7 (Version None)
Quarter: 2007Q3

REPORT INFORMATION
  Report Type: 
  Country: None (occurrence: None)
  Receive Date: 20070723
  Receipt Date: 20070112
  Transmission Date: 20080115
  Serious: Yes (Other)
  Sender: FDA-Public Use
  Company Number: A0635530A

PATIENT
  Sex: Female

DRUGS (1)
  1. AVANDIA [Suspect]
     Indication: GLUCOSE TOLERANCE IMPAIRED
     Dosage: 4MG TWICE PER DAY
     Route: 048

REACTIONS (2)
  - SWELLING FACE [None]
  - URTICARIA [None]
